FAERS Safety Report 7738393-X (Version None)
Quarter: 2011Q3

REPORT INFORMATION
  Report Type: 
  Country: None (occurrence: None)
  Receive Date: 20110908
  Receipt Date: 20110830
  Transmission Date: 20111222
  Serious: Yes (Hospitalization)
  Sender: FDA-Public Use
  Company Number: BR-ASTRAZENECA-2011SE52366

PATIENT
  Age: 73 Year
  Sex: Female
  Weight: 67 kg

DRUGS (7)
  1. ARIMIDEX [Suspect]
     Indication: BREAST CANCER
     Dosage: DAILY
     Route: 048
     Dates: start: 20080101
  2. LEVOID [Concomitant]
     Route: 048
     Dates: start: 20040101
  3. CALCIUM CARBONATE [Concomitant]
     Route: 048
     Dates: start: 20050101
  4. UNKNOWN [Concomitant]
     Route: 048
     Dates: end: 20080101
  5. CRESTOR [Suspect]
     Indication: HYPERCHOLESTEROLAEMIA
     Route: 048
     Dates: start: 20060101
  6. INDAPAMIDE [Concomitant]
     Indication: DIURETIC THERAPY
     Route: 048
     Dates: start: 20070101
  7. CLONAZEPAM [Concomitant]
     Route: 048
     Dates: start: 20080101

REACTIONS (4)
  - BREAST CANCER [None]
  - DYSPEPSIA [None]
  - NEUROPATHY PERIPHERAL [None]
  - GLUCOSE TOLERANCE IMPAIRED [None]
